FAERS Safety Report 5329441-5 (Version None)
Quarter: 2007Q2

REPORT INFORMATION
  Report Type: 
  Country: None (occurrence: None)
  Receive Date: 20070221
  Receipt Date: 20060309
  Transmission Date: 20071010
  Serious: Yes (Other)
  Sender: FDA-Public Use
  Company Number: BDI-008007

PATIENT
  Sex: Male

DRUGS (1)
  1. ISOVUE-300 [Suspect]
     Indication: CHEST PAIN
     Dosage: 110 ML ONCE IV
     Route: 042
     Dates: start: 20060306, end: 20060306

REACTIONS (1)
  - ANAPHYLACTOID REACTION [None]
